FAERS Safety Report 6404820-3 (Version None)
Quarter: 2009Q4

REPORT INFORMATION
  Report Type: 
  Country: None (occurrence: None)
  Receive Date: 20091016
  Receipt Date: 20091008
  Transmission Date: 20100525
  Serious: Yes (Other)
  Sender: FDA-Public Use
  Company Number: US-ABBOTT-09P-163-0601919-00

PATIENT
  Sex: Male
  Weight: 81.72 kg

DRUGS (9)
  1. NIASPAN [Suspect]
     Indication: BLOOD CHOLESTEROL INCREASED
     Dates: start: 20080515, end: 20080601
  2. NIASPAN [Suspect]
     Dates: start: 20080601, end: 20090218
  3. NIASPAN [Suspect]
     Dates: start: 20091004
  4. ASPIRIN [Concomitant]
     Indication: DRUG USE FOR UNKNOWN INDICATION
  5. RAMIPRIL [Concomitant]
     Indication: DRUG USE FOR UNKNOWN INDICATION
  6. CARVEDILOL [Concomitant]
     Indication: DRUG USE FOR UNKNOWN INDICATION
  7. SYNTHROID [Concomitant]
     Indication: DRUG USE FOR UNKNOWN INDICATION
  8. SYNTHROID [Concomitant]
     Dosage: MONDAY THROUGH SATURDAY
  9. VITAMIN B-12 [Concomitant]
     Indication: DRUG USE FOR UNKNOWN INDICATION

REACTIONS (9)
  - ABNORMAL DREAMS [None]
  - ANGINA PECTORIS [None]
  - HEART RATE DECREASED [None]
  - HOT FLUSH [None]
  - MUSCLE SPASMS [None]
  - OPEN WOUND [None]
  - OROPHARYNGEAL DISCOMFORT [None]
  - SKIN BURNING SENSATION [None]
  - STOMATITIS [None]
